FAERS Safety Report 21651837 (Version 1)
Quarter: 2022Q4

REPORT INFORMATION
  Report Type: Spontaneous
  Country: US (occurrence: US)
  Receive Date: 20221128
  Receipt Date: 20221128
  Transmission Date: 20230112
  Serious: No
  Sender: FDA-Public Use
  Company Number: US-CHIESI-2022CHF00308

PATIENT
  Age: 32 Year
  Sex: Female

DRUGS (1)
  1. REVCOVI [Suspect]
     Active Substance: ELAPEGADEMASE-LVLR
     Indication: Combined immunodeficiency
     Dosage: 2.4 MG/ 1.5 ML, 1 TIME A WEEK
     Dates: start: 20211007

REACTIONS (1)
  - Viral sinusitis [Recovered/Resolved]

NARRATIVE: CASE EVENT DATE: 20220117
